FAERS Safety Report 7049418-1 (Version None)
Quarter: 2010Q4

REPORT INFORMATION
  Report Type: 
  Country: None (occurrence: None)
  Receive Date: 20101018
  Receipt Date: 20101011
  Transmission Date: 20110411
  Serious: No
  Sender: FDA-Public Use
  Company Number: US-PFIZER INC-2010129395

PATIENT
  Sex: Male
  Weight: 72.121 kg

DRUGS (3)
  1. LIPITOR [Suspect]
     Indication: BLOOD CHOLESTEROL INCREASED
     Dosage: 80 MG ONCE A DAY
     Route: 048
  2. ZETIA [Concomitant]
     Dosage: 10 MG, UNK
  3. METOPROLOL TARTRATE [Concomitant]
     Dosage: UNK

REACTIONS (2)
  - FATIGUE [None]
  - PRODUCT TASTE ABNORMAL [None]
